FAERS Safety Report 16326789 (Version 2)
Quarter: 2019Q2

REPORT INFORMATION
  Report Type: Spontaneous
  Country: US (occurrence: US)
  Receive Date: 20190517
  Receipt Date: 20190528
  Transmission Date: 20190711
  Serious: Yes (Other)
  Sender: FDA-Public Use
  Company Number: US-ASTRAZENECA-2019SE72310

PATIENT
  Sex: Female
  Weight: 78.5 kg

DRUGS (2)
  1. SYMBICORT [Suspect]
     Active Substance: BUDESONIDE\FORMOTEROL FUMARATE DIHYDRATE
     Indication: AUTOIMMUNE DISORDER
     Dosage: 160/4.5 UG TWO PUFFS TWICE A DAY
     Route: 055
  2. PROAIR HFA [Concomitant]
     Active Substance: ALBUTEROL SULFATE
     Indication: ASTHMA
     Dosage: 8.5G AS REQUIRED
     Route: 055

REACTIONS (3)
  - Circumstance or information capable of leading to medication error [Unknown]
  - Device issue [Unknown]
  - Pleural effusion [Unknown]
